FAERS Safety Report 16947171 (Version 1)
Quarter: 2019Q4

REPORT INFORMATION
  Report Type: Spontaneous
  Country: US (occurrence: US)
  Receive Date: 20191022
  Receipt Date: 20191022
  Transmission Date: 20200122
  Serious: No
  Sender: FDA-Public Use
  Company Number: US-HORIZON-PEN-0905-2019

PATIENT
  Age: 54 Year
  Sex: Female

DRUGS (1)
  1. PENNSAID [Suspect]
     Active Substance: DICLOFENAC SODIUM
     Indication: ARTHRITIS
     Dosage: 2 PUMPS BID
     Route: 061

REACTIONS (3)
  - Application site pruritus [Unknown]
  - Application site erythema [Unknown]
  - Off label use [Unknown]

NARRATIVE: CASE EVENT DATE: 20190919
